FAERS Safety Report 8669346 (Version 4)
Quarter: 2013Q1

REPORT INFORMATION
  Report Type: Spontaneous
  Country: FR (occurrence: FR)
  Receive Date: 20120717
  Receipt Date: 20130114
  Transmission Date: 20140127
  Serious: Yes (Other)
  Sender: FDA-Public Use
  Company Number: FR-ROCHE-1087850

PATIENT
  Sex: Female
  Weight: 54 kg

DRUGS (3)
  1. LUCENTIS [Suspect]
     Indication: AGE-RELATED MACULAR DEGENERATION
     Route: 050
     Dates: start: 20120102
  2. LUCENTIS [Suspect]
     Route: 050
     Dates: start: 20120702
  3. OLMETEC [Concomitant]
     Indication: HYPERTENSION

REACTIONS (14)
  - Thyroid neoplasm [Unknown]
  - Conjunctival haemorrhage [Recovered/Resolved]
  - Eyelid oedema [Recovering/Resolving]
  - Visual acuity reduced [Unknown]
  - Eye irritation [Recovered/Resolved]
  - Conjunctivitis infective [Recovered/Resolved]
  - Drug ineffective [Unknown]
  - Thyroiditis [Unknown]
  - Fear [Recovered/Resolved]
  - Rhinorrhoea [Recovered/Resolved]
  - Blepharitis [Unknown]
  - Abnormal sensation in eye [Recovering/Resolving]
  - Photophobia [Recovering/Resolving]
  - Vitreous floaters [Unknown]
